FAERS Safety Report 8343884-7 (Version None)
Quarter: 2012Q2

REPORT INFORMATION
  Report Type: 
  Country: None (occurrence: None)
  Receive Date: 20120508
  Receipt Date: 20101011
  Transmission Date: 20120825
  Serious: Yes (Hospitalization, Other)
  Sender: FDA-Public Use
  Company Number: US-BAYER-201026715NA

PATIENT
  Age: 20 Year
  Sex: Female
  Weight: 64.399 kg

DRUGS (3)
  1. GLYBURIDE [Concomitant]
     Dosage: UNK
     Dates: start: 20060101
  2. REGLAN [Concomitant]
     Dosage: UNK
     Dates: start: 20060101
  3. YASMIN [Suspect]
     Dosage: UNK UNK, UNK
     Route: 048
     Dates: start: 20060930, end: 20080101

REACTIONS (5)
  - GALLBLADDER DISORDER [None]
  - CHOLECYSTITIS CHRONIC [None]
  - CHOLESTEROSIS [None]
  - ABDOMINAL PAIN [None]
  - CHOLELITHIASIS [None]
